FAERS Safety Report 7111295-8 (Version None)
Quarter: 2010Q4

REPORT INFORMATION
  Report Type: 
  Country: None (occurrence: None)
  Receive Date: 20101118
  Receipt Date: 20101108
  Transmission Date: 20110411
  Serious: Yes (Other)
  Sender: FDA-Public Use
  Company Number: PHHY2010AU32959

PATIENT
  Sex: Male

DRUGS (2)
  1. GLEEVEC [Suspect]
     Indication: CHRONIC MYELOID LEUKAEMIA
     Dosage: 400 MG, UNK
     Route: 048
     Dates: start: 20090520
  2. GLEEVEC [Suspect]
     Dosage: 600 MG, UNK
     Route: 048

REACTIONS (13)
  - BLOOD BLISTER [None]
  - DEAFNESS UNILATERAL [None]
  - DIARRHOEA [None]
  - EYE OEDEMA [None]
  - FATIGUE [None]
  - FLUID RETENTION [None]
  - MYALGIA [None]
  - NAUSEA [None]
  - OTITIS MEDIA [None]
  - OTORRHOEA [None]
  - RASH [None]
  - SKIN HAEMORRHAGE [None]
  - SWELLING FACE [None]
